FAERS Safety Report 8300935-3 (Version None)
Quarter: 2012Q1

REPORT INFORMATION
  Report Type: 
  Country: None (occurrence: None)
  Receive Date: 20120326
  Receipt Date: 20110404
  Transmission Date: 20120608
  Serious: Yes (Other)
  Sender: FDA-Public Use
  Company Number: PHEH2008US02179

PATIENT
  Age: 59 Year
  Sex: Female
  Weight: 72.6 kg

DRUGS (14)
  1. TRILISATE (CHOLINE SALICYLATE, MAGNESIUM SALICYLATE) [Suspect]
     Indication: MYALGIA
     Dosage: 750 MG, BID, ORAL
     Route: 048
     Dates: start: 20080104, end: 20080125
  2. AMBIEN [Concomitant]
  3. BENADRYL ^WARNER-LAMBERT^ /USA/ (DIIPHENHYDRAMINE HYDROCHLORIDE) [Concomitant]
  4. DESOXIMETASONE (DESOXIMETASONE) [Concomitant]
  5. ALPRAZOLAM [Concomitant]
  6. HYDROXYZINE [Concomitant]
  7. TASIGNA [Suspect]
     Indication: SYSTEMIC MASTOCYTOSIS
     Dosage: 400 MG, BID, ORAL
     Route: 048
     Dates: start: 20071228, end: 20080115
  8. LIPITOR [Suspect]
     Indication: HYPERCHOLESTEROLAEMIA
     Dosage: 10 MG, QHS
     Dates: start: 20070901, end: 20080125
  9. ACETAMINOPHEN [Concomitant]
  10. HYDROCORTONE [Concomitant]
  11. MULTIPLE VITAMINS (ASCORBIC ACID, ERGOCALCIFEROL, FOLIC ACID, RETINOL, [Concomitant]
  12. LEVOTHYROXINE SODIUM [Concomitant]
  13. MARINOL [Concomitant]
  14. ZANTAC [Concomitant]

REACTIONS (16)
  - ARTHRALGIA [None]
  - ALANINE AMINOTRANSFERASE INCREASED [None]
  - LIVER FUNCTION TEST ABNORMAL [None]
  - NAUSEA [None]
  - MYALGIA [None]
  - ASPARTATE AMINOTRANSFERASE INCREASED [None]
  - ANXIETY [None]
  - BLOOD GLUCOSE INCREASED [None]
  - PRURITUS [None]
  - BLOOD UREA INCREASED [None]
  - FEELING ABNORMAL [None]
  - BLOOD SODIUM DECREASED [None]
  - DYSPNOEA [None]
  - BLOOD ALKALINE PHOSPHATASE INCREASED [None]
  - VOMITING [None]
  - BLOOD BILIRUBIN INCREASED [None]
